FAERS Safety Report 16896645 (Version 1)
Quarter: 2019Q4

REPORT INFORMATION
  Report Type: Report from Study
  Country: US (occurrence: US)
  Receive Date: 20191008
  Receipt Date: 20191008
  Transmission Date: 20200122
  Serious: Yes (Hospitalization)
  Sender: FDA-Public Use
  Company Number: US-ACTELION-A-NJ2018-170241

PATIENT
  Age: 66 Year
  Sex: Female
  Weight: 77.1 kg

DRUGS (1)
  1. OPSUMIT [Suspect]
     Active Substance: MACITENTAN
     Indication: PULMONARY ARTERIAL HYPERTENSION
     Dosage: 10 MG, QD
     Route: 048
     Dates: start: 20180201

REACTIONS (7)
  - Ear infection [Unknown]
  - Seasonal allergy [Unknown]
  - Dyspnoea [Unknown]
  - Nasal congestion [Unknown]
  - Hypoacusis [Unknown]
  - Limb injury [Unknown]
  - Unevaluable event [Unknown]

NARRATIVE: CASE EVENT DATE: 201802
